FAERS Safety Report 5188786-2 (Version None)
Quarter: 2006Q4

REPORT INFORMATION
  Report Type: 
  Country: None (occurrence: None)
  Receive Date: 20061215
  Receipt Date: 20061201
  Transmission Date: 20070319
  Serious: Yes (Hospitalization)
  Sender: FDA-Public Use
  Company Number: 2006120008

PATIENT
  Age: 45 Year
  Sex: Male

DRUGS (2)
  1. MEPROBAMATE [Suspect]
     Indication: ILL-DEFINED DISORDER
  2. CARBAMAZEPINE [Suspect]
     Indication: ILL-DEFINED DISORDER

REACTIONS (7)
  - BEZOAR [None]
  - CONVULSION [None]
  - DEPRESSED LEVEL OF CONSCIOUSNESS [None]
  - DRUG LEVEL DECREASED [None]
  - HYPOTENSION [None]
  - INTENTIONAL SELF-INJURY [None]
  - SOMNOLENCE [None]
